FAERS Safety Report 17189541 (Version 1)
Quarter: 2019Q4

REPORT INFORMATION
  Report Type: Spontaneous
  Country: CA (occurrence: CA)
  Receive Date: 20191223
  Receipt Date: 20191223
  Transmission Date: 20200122
  Serious: Yes (Death)
  Sender: FDA-Public Use
  Company Number: CA-TEVA-2019-CA-1156435

PATIENT
  Age: 55 Year
  Sex: Female

DRUGS (3)
  1. OLANZAPINE. [Suspect]
     Active Substance: OLANZAPINE
     Dosage: 30 MILLIGRAM DAILY;
     Route: 048
  2. SANDOZ BUPROPION SR [Suspect]
     Active Substance: BUPROPION
     Dosage: 150 MILLIGRAM DAILY;
     Route: 048
  3. OXYCOCET (MNF.UNKNOWN) [Concomitant]

REACTIONS (1)
  - Completed suicide [Fatal]
